FAERS Safety Report 9498979 (Version 1)
Quarter: 2013Q3

REPORT INFORMATION
  Report Type: Spontaneous
  Country: TR (occurrence: TR)
  Receive Date: 20130904
  Receipt Date: 20130904
  Transmission Date: 20140515
  Serious: Yes (Death, Life-Threatening, Hospitalization)
  Sender: FDA-Public Use
  Company Number: TR-ROXANE LABORATORIES, INC.-2013-RO-01476RO

PATIENT
  Sex: 0

DRUGS (1)
  1. DIGOXIN [Suspect]

REACTIONS (3)
  - Ventricular fibrillation [Fatal]
  - Ventricular tachycardia [Unknown]
  - Toxicity to various agents [Unknown]
